FAERS Safety Report 14806512 (Version 1)
Quarter: 2018Q2

REPORT INFORMATION
  Report Type: Spontaneous
  Country: AU (occurrence: AU)
  Receive Date: 20180425
  Receipt Date: 20180425
  Transmission Date: 20180711
  Serious: Yes (Hospitalization)
  Sender: FDA-Public Use
  Company Number: AU-BAYER-2018-080007

PATIENT
  Age: 94 Year
  Sex: Female

DRUGS (1)
  1. ULTRAVIST [Suspect]
     Active Substance: IOPROMIDE
     Indication: IMAGING PROCEDURE
     Dosage: 65 ML, ONCE
     Dates: start: 20180420, end: 20180420

REACTIONS (5)
  - Contrast media reaction [None]
  - Unresponsive to stimuli [None]
  - Heart rate decreased [None]
  - Seizure [None]
  - Oxygen saturation decreased [None]

NARRATIVE: CASE EVENT DATE: 20180420
